FAERS Safety Report 24830867 (Version 2)
Quarter: 2025Q1

REPORT INFORMATION
  Report Type: Report from Study
  Country: US (occurrence: US)
  Receive Date: 20250110
  Receipt Date: 20250325
  Transmission Date: 20250408
  Serious: No
  Sender: SUNOVION
  Company Number: US-SUMITOMO PHARMA SWITZERLAND GMBH-2024SPA006833

PATIENT

DRUGS (6)
  1. ORGOVYX [Suspect]
     Active Substance: RELUGOLIX
     Indication: Prostate cancer
     Dosage: 360 MG, SINGLE
     Route: 048
     Dates: start: 20241220, end: 20241220
  2. ORGOVYX [Suspect]
     Active Substance: RELUGOLIX
     Dosage: 120 MG, QD
     Route: 048
     Dates: start: 20241221
  3. LOSARTAN [Concomitant]
     Active Substance: LOSARTAN
     Route: 065
  4. ROSUVASTATIN [Concomitant]
     Active Substance: ROSUVASTATIN
     Route: 065
  5. Dulcolax [Concomitant]
     Route: 065
  6. FLOMAX [Concomitant]
     Active Substance: TAMSULOSIN HYDROCHLORIDE
     Route: 048

REACTIONS (3)
  - Fatigue [Unknown]
  - Constipation [Unknown]
  - Diarrhoea [Unknown]
